FAERS Safety Report 8874458 (Version 1)
Quarter: 2012Q4

REPORT INFORMATION
  Report Type: 
  Country: US (occurrence: US)
  Receive Date: 20121023
  Receipt Date: 20121023
  Transmission Date: 20130627
  Serious: No
  Sender: FDA-Public Use
  Company Number: US-VERTEX PHARMACEUTICAL INC.-2012-023262

PATIENT
  Age: 61 Year
  Sex: Male
  Weight: 68 kg

DRUGS (8)
  1. VX-950 [Suspect]
     Indication: HEPATITIS C
     Dosage: 750 mg, tid
     Route: 048
  2. PEGASYS [Concomitant]
     Indication: HEPATITIS C
     Dosage: 180 ?g/M
  3. RIBAVIRIN [Concomitant]
     Indication: HEPATITIS C
  4. METFORMIN [Concomitant]
     Dosage: 500 mg, UNK
  5. ONGLYZA [Concomitant]
     Dosage: 5 mg, UNK
  6. SENIOR MULTI TABS PLUS [Concomitant]
  7. LUNESTA [Concomitant]
     Dosage: 1 mg, UNK
  8. NEUMEGA [Concomitant]
     Dosage: 5 mg, UNK

REACTIONS (8)
  - White blood cell count decreased [Not Recovered/Not Resolved]
  - Ear infection [Not Recovered/Not Resolved]
  - Blister infected [Not Recovered/Not Resolved]
  - Insomnia [Unknown]
  - Dyspepsia [Unknown]
  - Rash generalised [Unknown]
  - Red blood cell count decreased [Not Recovered/Not Resolved]
  - Platelet count decreased [Not Recovered/Not Resolved]
